FAERS Safety Report 8340570 (Version 2)
Quarter: 2013Q4

REPORT INFORMATION
  Report Type: Spontaneous
  Country: US (occurrence: US)
  Receive Date: 20120117
  Receipt Date: 20131011
  Transmission Date: 20140711
  Serious: Yes (Hospitalization, Other)
  Sender: FDA-Public Use
  Company Number: US-ROCHE-793764

PATIENT
  Age: 31 Year
  Sex: Female
  Weight: 53.57 kg

DRUGS (1)
  1. ACCUTANE [Suspect]
     Indication: ACNE
     Route: 065
     Dates: start: 1982, end: 1983

REACTIONS (7)
  - Depression [Unknown]
  - Inflammatory bowel disease [Unknown]
  - Panic attack [Unknown]
  - Arthritis [Unknown]
  - Suicidal ideation [Unknown]
  - Suicide attempt [Unknown]
  - Irritable bowel syndrome [Unknown]
